FAERS Safety Report 6867247-6 (Version None)
Quarter: 2010Q3

REPORT INFORMATION
  Report Type: 
  Country: None (occurrence: None)
  Receive Date: 20100722
  Receipt Date: 20100716
  Transmission Date: 20110219
  Serious: Yes (Other)
  Sender: FDA-Public Use
  Company Number: HQWYE191816JUL04

PATIENT
  Sex: Female

DRUGS (4)
  1. PREMPRO [Suspect]
  2. MEDROXYPROGESTERONE ACETATE [Suspect]
  3. MEDROXYPROGESTERONE ACETATE [Suspect]
  4. PREMARIN [Suspect]

REACTIONS (5)
  - BREAST CANCER METASTATIC [None]
  - DIARRHOEA [None]
  - METASTASES TO LYMPH NODES [None]
  - NON-SMALL CELL LUNG CANCER [None]
  - OESOPHAGEAL ULCER [None]
